FAERS Safety Report 22367894 (Version 1)
Quarter: 2023Q2

REPORT INFORMATION
  Report Type: Spontaneous
  Country: US (occurrence: None)
  Receive Date: 20230525
  Receipt Date: 20230525
  Transmission Date: 20230722
  Serious: Yes (Hospitalization)
  Sender: FDA-Public Use
  Company Number: None

PATIENT
  Age: 72 Year
  Sex: Male

DRUGS (1)
  1. HUMIRA [Suspect]
     Active Substance: ADALIMUMAB
     Route: 058

REACTIONS (7)
  - Pain in extremity [None]
  - Back pain [None]
  - Nerve injury [None]
  - Peripheral swelling [None]
  - Patella fracture [None]
  - Rash [None]
  - Contusion [None]

NARRATIVE: CASE EVENT DATE: 20230511
